FAERS Safety Report 8174477-2 (Version None)
Quarter: 2012Q1

REPORT INFORMATION
  Report Type: 
  Country: None (occurrence: None)
  Receive Date: 20120229
  Receipt Date: 20120227
  Transmission Date: 20120608
  Serious: Yes (Other)
  Sender: FDA-Public Use
  Company Number: US-BAYER-2012-007584

PATIENT
  Age: 61 Year
  Sex: Female
  Weight: 44.444 kg

DRUGS (8)
  1. KONDREMUL [Concomitant]
     Dosage: 50% AS DIRECTED
  2. BETASERON [Suspect]
     Indication: MULTIPLE SCLEROSIS
     Dosage: 0.3 MG, QOD
     Route: 058
     Dates: start: 19940809
  3. LEXAPRO [Concomitant]
     Dosage: 20 MG, UNK
  4. SENNA [Concomitant]
  5. MIRALAX [Concomitant]
     Dosage: UNK UNK, PRN
  6. SORBITOL 50PC INJ [Concomitant]
     Dosage: UNK UNK, PRN
  7. AMITIZA [Concomitant]
  8. SYMBICORT [Concomitant]
     Dosage: 80 - 4.5 MCG/ACT 2 PUFFS BID

REACTIONS (1)
  - URETERIC CANCER [None]
